FAERS Safety Report 24911892 (Version 3)
Quarter: 2025Q1

REPORT INFORMATION
  Report Type: Spontaneous
  Country: US (occurrence: US)
  Receive Date: 20250131
  Receipt Date: 20250320
  Transmission Date: 20250408
  Serious: Yes (Other)
  Sender: XERIS PHARMACEUTICALS
  Company Number: US-BRIAN CONNER SVP QUALITY AND CHIEF COMPLIANCE OFFICER-2025XER00003

PATIENT
  Age: 69 Year
  Sex: Female

DRUGS (3)
  1. RECORLEV [Suspect]
     Active Substance: LEVOKETOCONAZOLE
     Indication: Cushing^s syndrome
     Dosage: 1 TABLET (150 MG), 2X/DAY
     Route: 048
     Dates: start: 202412
  2. RECORLEV [Suspect]
     Active Substance: LEVOKETOCONAZOLE
     Dosage: 2 TABLETS (300 MG), 2X/DAY
     Route: 048
     Dates: start: 20250305
  3. LORAZEPAM [Suspect]
     Active Substance: LORAZEPAM
     Dosage: 1 MG, 2X/DAY (AS NEEDED)
     Route: 065

REACTIONS (11)
  - Renal impairment [Recovered/Resolved]
  - Balance disorder [Not Recovered/Not Resolved]
  - Blood uric acid increased [Not Recovered/Not Resolved]
  - Urinary tract infection [Not Recovered/Not Resolved]
  - Fatigue [Not Recovered/Not Resolved]
  - Nausea [Recovered/Resolved]
  - Insomnia [Not Recovered/Not Resolved]
  - Abdominal pain upper [Not Recovered/Not Resolved]
  - Abdominal discomfort [Not Recovered/Not Resolved]
  - Drug effect less than expected [Not Recovered/Not Resolved]
  - Medication error [Unknown]

NARRATIVE: CASE EVENT DATE: 20250301
